FAERS Safety Report 7204979-4 (Version None)
Quarter: 2010Q4

REPORT INFORMATION
  Report Type: 
  Country: None (occurrence: None)
  Receive Date: 20101230
  Receipt Date: 20101229
  Transmission Date: 20110411
  Serious: Yes (Other)
  Sender: FDA-Public Use
  Company Number: PE-PFIZER INC-2010162474

PATIENT
  Age: 37 Year
  Sex: Female

DRUGS (2)
  1. CELEBREX [Suspect]
     Indication: BACK PAIN
     Dosage: 200 MG, 2X/DAY
     Route: 048
     Dates: start: 20101116, end: 20101101
  2. EUTIROX [Concomitant]
     Dosage: UNK

REACTIONS (3)
  - AMAUROSIS FUGAX [None]
  - BLINDNESS TRANSIENT [None]
  - NERVOUSNESS [None]
